FAERS Safety Report 21581360 (Version 1)
Quarter: 2022Q4

REPORT INFORMATION
  Report Type: Other
  Country: GB (occurrence: None)
  Receive Date: 20221111
  Receipt Date: 20221111
  Transmission Date: 20230113
  Serious: No
  Sender: FDA-Public Use
  Company Number: GB-ROCHE-3216463

PATIENT
  Age: 45 Year
  Sex: Female

DRUGS (11)
  1. OCRELIZUMAB [Suspect]
     Active Substance: OCRELIZUMAB
     Indication: Relapsing-remitting multiple sclerosis
     Dosage: 22/SEP/2020 (250ML), 23/JUN/2022 (500ML), 23/DEC/2021 (500ML), 10/JUN/2021 (500ML)
     Route: 042
     Dates: start: 20200908
  2. ACETAMINOPHEN [Concomitant]
     Active Substance: ACETAMINOPHEN
     Route: 048
     Dates: start: 20220623, end: 20220623
  3. CETIRIZINE [Concomitant]
     Active Substance: CETIRIZINE HYDROCHLORIDE
     Route: 048
     Dates: start: 20220623, end: 20220623
  4. METHYLPREDNISOLONE [Concomitant]
     Active Substance: METHYLPREDNISOLONE
     Route: 042
     Dates: start: 20220623, end: 20220623
  5. AMANTADINE [Concomitant]
     Active Substance: AMANTADINE
     Indication: Multiple sclerosis
     Route: 048
     Dates: start: 20130612
  6. BACLOFEN [Concomitant]
     Active Substance: BACLOFEN
     Indication: Multiple sclerosis
     Route: 048
     Dates: start: 20150501
  7. MIRABEGRON [Concomitant]
     Active Substance: MIRABEGRON
     Indication: Multiple sclerosis
  8. DESMOPRESSIN [Concomitant]
     Active Substance: DESMOPRESSIN
     Indication: Multiple sclerosis
  9. SOLIFENACIN [Concomitant]
     Active Substance: SOLIFENACIN
     Indication: Multiple sclerosis
  10. IBUPROFEN [Concomitant]
     Active Substance: IBUPROFEN
  11. BACLOFEN [Concomitant]
     Active Substance: BACLOFEN
     Indication: Multiple sclerosis

REACTIONS (1)
  - COVID-19 [Recovered/Resolved]

NARRATIVE: CASE EVENT DATE: 20220715
